FAERS Safety Report 12972697 (Version 1)
Quarter: 2016Q4

REPORT INFORMATION
  Report Type: Spontaneous
  Country: JP (occurrence: JP)
  Receive Date: 20161124
  Receipt Date: 20161124
  Transmission Date: 20170207
  Serious: Yes (Death)
  Sender: FDA-Public Use
  Company Number: JP-ROCHE-1858982

PATIENT
  Age: 40 Year
  Sex: Female

DRUGS (1)
  1. ACTIVACIN [Suspect]
     Active Substance: ALTEPLASE
     Indication: PULMONARY EMBOLISM
     Route: 042

REACTIONS (1)
  - Intra-abdominal haemorrhage [Fatal]
